FAERS Safety Report 6148944-7 (Version None)
Quarter: 2009Q2

REPORT INFORMATION
  Report Type: 
  Country: None (occurrence: None)
  Receive Date: 20090406
  Receipt Date: 20090326
  Transmission Date: 20091009
  Serious: Yes (Hospitalization)
  Sender: FDA-Public Use
  Company Number: 2009-01015

PATIENT
  Age: 66 Year
  Sex: Male

DRUGS (3)
  1. VELCADE [Suspect]
     Indication: MULTIPLE MYELOMA
     Dosage: 2.2 MG, , INTRAVENOUS
     Route: 042
     Dates: start: 20090119, end: 20090309
  2. DOXORUBICIN HCL [Suspect]
     Indication: MULTIPLE MYELOMA
     Dosage: 62 MG, , INTRAVENOUS
     Route: 042
     Dates: start: 20090119, end: 20090302
  3. DEXAMETHASONE TAB [Suspect]
     Indication: MULTIPLE MYELOMA
     Dosage: 40 MG, ORAL
     Route: 048
     Dates: start: 20090119, end: 20090305

REACTIONS (9)
  - BODY TEMPERATURE INCREASED [None]
  - CHILLS [None]
  - COUGH [None]
  - HYPONATRAEMIA [None]
  - INAPPROPRIATE ANTIDIURETIC HORMONE SECRETION [None]
  - LOWER RESPIRATORY TRACT INFECTION [None]
  - MALAISE [None]
  - NEUTROPENIC INFECTION [None]
  - NEUTROPENIC SEPSIS [None]
